FAERS Safety Report 4966864-8 (Version None)
Quarter: 2006Q2

REPORT INFORMATION
  Report Type: 
  Country: None (occurrence: None)
  Receive Date: 20060407
  Receipt Date: 20050928
  Transmission Date: 20061013
  Serious: Yes (Death, Hospitalization)
  Sender: FDA-Public Use
  Company Number: US-MERCK-0509USA04843

PATIENT
  Age: 79 Year
  Sex: Male
  Weight: 85 kg

DRUGS (10)
  1. VIOXX [Suspect]
     Indication: OSTEOARTHRITIS
     Route: 048
     Dates: start: 20001001, end: 20030901
  2. COUMADIN [Concomitant]
     Route: 048
  3. PRINZIDE [Concomitant]
     Route: 048
  4. MEVACOR [Concomitant]
     Route: 048
  5. HYTRIN [Concomitant]
     Route: 048
  6. QUININE SULFATE [Concomitant]
     Route: 048
  7. GLUCOSAMINE [Concomitant]
     Route: 048
  8. NORVASC [Concomitant]
     Route: 048
  9. LASIX [Concomitant]
     Route: 048
  10. TYLENOL (CAPLET) [Concomitant]
     Route: 048

REACTIONS (3)
  - DEATH [None]
  - ISCHAEMIC STROKE [None]
  - LACUNAR INFARCTION [None]
